FAERS Safety Report 7212270 (Version 6)
Quarter: 2012Q4

REPORT INFORMATION
  Report Type: 
  Country: JP (occurrence: US)
  Receive Date: 20091211
  Receipt Date: 20121022
  Transmission Date: 20130627
  Serious: Yes (Hospitalization, Other)
  Sender: FDA-Public Use
  Company Number: US-JNJFOC-20091201206

PATIENT
  Age: 35 Year
  Sex: Male

DRUGS (5)
  1. LEVAQUIN [Suspect]
     Indication: BACTERIAL INFECTION
     Route: 042
     Dates: start: 200803, end: 200803
  2. LEVAQUIN [Suspect]
     Indication: VASECTOMY
     Route: 042
     Dates: start: 200803, end: 200803
  3. LEVAQUIN [Suspect]
     Indication: INFECTION
     Route: 048
  4. LYRICA [Concomitant]
     Route: 065
  5. UNKNOWN MEDICATION [Concomitant]
     Route: 065

REACTIONS (14)
  - Tendonitis [Not Recovered/Not Resolved]
  - Tendon injury [Unknown]
  - Neuropathy peripheral [Not Recovered/Not Resolved]
  - Neuritis [Not Recovered/Not Resolved]
  - Fibromyalgia [Not Recovered/Not Resolved]
  - Arthralgia [Not Recovered/Not Resolved]
  - Back pain [Not Recovered/Not Resolved]
  - Eye pain [Not Recovered/Not Resolved]
  - Nervous system disorder [Unknown]
  - Muscle disorder [Unknown]
  - Arthropathy [Unknown]
  - Tinnitus [Unknown]
  - Insomnia [Not Recovered/Not Resolved]
  - Fatigue [Unknown]
